FAERS Safety Report 5268015-1 (Version None)
Quarter: 2007Q1

REPORT INFORMATION
  Report Type: 
  Country: None (occurrence: None)
  Receive Date: 20061213
  Receipt Date: 20040727
  Transmission Date: 20070707
  Serious: Yes (Other)
  Sender: FDA-Public Use
  Company Number: 2004UW15770

PATIENT
  Age: 75 Year
  Sex: Female

DRUGS (3)
  1. IRESSA [Suspect]
  2. PROZAC [Concomitant]
  3. ACEBUTOLOL [Concomitant]

REACTIONS (1)
  - ALOPECIA [None]
